FAERS Safety Report 9566053 (Version 2)
Quarter: 2014Q1

REPORT INFORMATION
  Report Type: Spontaneous
  Country: US (occurrence: US)
  Receive Date: 20130930
  Receipt Date: 20140306
  Transmission Date: 20141002
  Serious: Yes (Hospitalization)
  Sender: FDA-Public Use
  Company Number: US-B.I. PHARMACEUTICALS,INC./RIDGEFIELD-2013-BI-30294BP

PATIENT
  Sex: Male
  Weight: 77.11 kg

DRUGS (11)
  1. PRADAXA [Suspect]
     Indication: ATRIAL FIBRILLATION
     Route: 065
     Dates: start: 20110905, end: 20111005
  2. CARVEDILOL [Concomitant]
     Dosage: 6.25 MG
     Route: 048
  3. DIGOXIN [Concomitant]
     Route: 065
  4. ZETIA [Concomitant]
     Dosage: 10 MG
     Route: 065
  5. CRESTOR [Concomitant]
     Dosage: 10 MG
     Route: 065
  6. ASPIRIN [Concomitant]
     Dosage: 325 MG
     Route: 065
  7. GABAPENTIN [Concomitant]
     Dosage: 600 MG
     Route: 065
  8. FUROSEMIDE [Concomitant]
     Dosage: 20 MG
     Route: 065
  9. FISH OIL [Concomitant]
     Route: 065
  10. GLIMEPIRIDE [Concomitant]
     Route: 065
  11. VITAMIN D [Concomitant]
     Route: 065

REACTIONS (4)
  - Gastrointestinal haemorrhage [Unknown]
  - Anaemia [Unknown]
  - Haemorrhagic diathesis [Unknown]
  - Contusion [Unknown]
